FAERS Safety Report 4911745-9 (Version None)
Quarter: 2006Q1

REPORT INFORMATION
  Report Type: 
  Country: None (occurrence: None)
  Receive Date: 20060215
  Receipt Date: 20060203
  Transmission Date: 20060701
  Serious: Yes (Hospitalization)
  Sender: FDA-Public Use
  Company Number: NL-JNJFOC-20060201144

PATIENT
  Sex: Female
  Weight: 45 kg

DRUGS (5)
  1. INFLIXIMAB [Suspect]
     Indication: CROHN'S DISEASE
  2. OXYNORM [Concomitant]
     Indication: FIBROMYALGIA
  3. MESALAMINE [Concomitant]
     Indication: CROHN'S DISEASE
  4. DIPHANTOIN [Concomitant]
  5. DIAZEPAM [Concomitant]

REACTIONS (1)
  - OLIGODENDROGLIOMA [None]
